FAERS Safety Report 18002318 (Version 17)
Quarter: 2022Q2

REPORT INFORMATION
  Report Type: Spontaneous
  Country: GB (occurrence: GB)
  Receive Date: 20200709
  Receipt Date: 20220524
  Transmission Date: 20220721
  Serious: Yes (Hospitalization, Other)
  Sender: FDA-Public Use
  Company Number: GB-BRISTOL-MYERS SQUIBB COMPANY-BMS-2020-053886

PATIENT
  Sex: Male

DRUGS (45)
  1. EFAVIRENZ [Suspect]
     Active Substance: EFAVIRENZ
     Indication: Product used for unknown indication
     Dosage: 1 DF, QD
     Route: 065
  2. EFAVIRENZ [Suspect]
     Active Substance: EFAVIRENZ
     Dosage: UNK UNK, QD(STRENGTH 600)
     Route: 065
  3. EFAVIRENZ [Suspect]
     Active Substance: EFAVIRENZ
     Dosage: 300 MG, QD
     Route: 065
  4. EFAVIRENZ [Suspect]
     Active Substance: EFAVIRENZ
     Dosage: 600 MG, QD
     Route: 065
  5. EFAVIRENZ [Suspect]
     Active Substance: EFAVIRENZ
     Dosage: 600 MG, QD
     Route: 065
  6. LAMIVUDINE [Suspect]
     Active Substance: LAMIVUDINE
     Indication: Product used for unknown indication
     Dosage: 300 MG, QD
     Route: 065
  7. LAMIVUDINE [Suspect]
     Active Substance: LAMIVUDINE
     Dosage: 300 MG, QD
     Route: 065
  8. LAMIVUDINE [Suspect]
     Active Substance: LAMIVUDINE
     Dosage: 600 MG, QD
     Route: 065
  9. LAMIVUDINE [Suspect]
     Active Substance: LAMIVUDINE
     Dosage: 300 MG, QD
     Route: 065
  10. LAMIVUDINE [Suspect]
     Active Substance: LAMIVUDINE
     Dosage: 300 MG, QD
     Route: 065
  11. LAMIVUDINE [Suspect]
     Active Substance: LAMIVUDINE
     Dosage: 300 MG, QD
     Route: 065
  12. LAMIVUDINE [Suspect]
     Active Substance: LAMIVUDINE
     Indication: Product used for unknown indication
     Dosage: 100 MG, QD
     Route: 065
  13. LAMIVUDINE [Suspect]
     Active Substance: LAMIVUDINE
     Dosage: UNK UNK, QD (100 OD)
     Route: 065
  14. LAMIVUDINE [Suspect]
     Active Substance: LAMIVUDINE
     Dosage: 100 MG, QD (OD)
     Route: 065
  15. LAMIVUDINE [Suspect]
     Active Substance: LAMIVUDINE
     Dosage: 100 MG, QD
     Route: 065
  16. LAMIVUDINE [Suspect]
     Active Substance: LAMIVUDINE
     Dosage: 100 MG, QD
     Route: 065
  17. LAMIVUDINE [Suspect]
     Active Substance: LAMIVUDINE
     Dosage: 100 MG, QD
     Route: 065
  18. LAMIVUDINE [Suspect]
     Active Substance: LAMIVUDINE
     Dosage: 100 MG, QD (OD)
     Route: 065
  19. LAMIVUDINE [Suspect]
     Active Substance: LAMIVUDINE
     Dosage: 100 MG, QD (1D,100)
     Route: 065
  20. LAMIVUDINE [Suspect]
     Active Substance: LAMIVUDINE
     Dosage: 300 MILLIGRAM, QD,
     Route: 065
  21. LAMIVUDINE [Suspect]
     Active Substance: LAMIVUDINE
     Dosage: 100 MILLIGRAM, QD,
  22. LAMIVUDINE [Suspect]
     Active Substance: LAMIVUDINE
     Dosage: 100 MG, QD
     Route: 065
  23. LAMIVUDINE [Suspect]
     Active Substance: LAMIVUDINE
     Dosage: 100 MG, QD (STRENGTH 100 OD)
     Route: 065
  24. LAMIVUDINE [Suspect]
     Active Substance: LAMIVUDINE
     Dosage: 100 MG, QD
     Route: 065
  25. LAMIVUDINE [Suspect]
     Active Substance: LAMIVUDINE
     Dosage: 100 MG, QD
     Route: 065
  26. LAMIVUDINE [Suspect]
     Active Substance: LAMIVUDINE
     Dosage: 100 MG, QD
     Route: 065
  27. LAMIVUDINE [Suspect]
     Active Substance: LAMIVUDINE
     Dosage: UNK UNK, QD (100 OD)
     Route: 065
  28. LAMIVUDINE [Suspect]
     Active Substance: LAMIVUDINE
     Dosage: 100 MG, QD (OD)
     Route: 065
  29. LAMIVUDINE [Suspect]
     Active Substance: LAMIVUDINE
     Dosage: 100 MG, QD
     Route: 065
  30. LAMIVUDINE [Suspect]
     Active Substance: LAMIVUDINE
     Dosage: 100 MG, QD
     Route: 065
  31. LAMIVUDINE [Suspect]
     Active Substance: LAMIVUDINE
     Dosage: 100 MG, QD (OD)
     Route: 065
  32. LAMIVUDINE [Suspect]
     Active Substance: LAMIVUDINE
     Dosage: 100 MG, QD
     Route: 065
  33. LAMIVUDINE [Suspect]
     Active Substance: LAMIVUDINE
     Dosage: 100 MG, QD
     Route: 065
  34. LAMIVUDINE [Suspect]
     Active Substance: LAMIVUDINE
     Dosage: 100 MG, QD
     Route: 065
  35. LAMIVUDINE [Suspect]
     Active Substance: LAMIVUDINE
     Dosage: UNK UNK, QD (100 OD)
     Route: 065
  36. LAMIVUDINE [Suspect]
     Active Substance: LAMIVUDINE
     Dosage: 100 MG, QD (OD)
     Route: 065
  37. LAMIVUDINE [Suspect]
     Active Substance: LAMIVUDINE
     Dosage: 100 MG, QD
     Route: 065
  38. LAMIVUDINE [Suspect]
     Active Substance: LAMIVUDINE
     Dosage: 100 MG, QD
     Route: 065
  39. LAMIVUDINE [Suspect]
     Active Substance: LAMIVUDINE
     Dosage: 100 MG, QD
     Route: 065
  40. LAMIVUDINE [Suspect]
     Active Substance: LAMIVUDINE
     Dosage: UNK UNK, QD (100 OD)
     Route: 065
  41. LAMIVUDINE [Suspect]
     Active Substance: LAMIVUDINE
     Dosage: 100 MG, QD
     Route: 065
  42. LAMIVUDINE [Suspect]
     Active Substance: LAMIVUDINE
     Dosage: 300 MG, QD
     Route: 065
  43. ABACAVIR [Suspect]
     Active Substance: ABACAVIR
     Indication: Product used for unknown indication
  44. ABACAVIR SULFATE [Suspect]
     Active Substance: ABACAVIR SULFATE
     Indication: Product used for unknown indication
     Dosage: 300 MG, QD
  45. ABACAVIR SULFATE [Suspect]
     Active Substance: ABACAVIR SULFATE
     Dosage: 600 MG, QD

REACTIONS (7)
  - Hospitalisation [Unknown]
  - Lung cancer metastatic [Unknown]
  - Metastases to central nervous system [Unknown]
  - Malaise [Unknown]
  - Lung neoplasm malignant [Unknown]
  - Life expectancy shortened [Not Recovered/Not Resolved]
  - Feeling abnormal [Unknown]
